FAERS Safety Report 6694505-0 (Version None)
Quarter: 2010Q2

REPORT INFORMATION
  Report Type: 
  Country: None (occurrence: None)
  Receive Date: 20100423
  Receipt Date: 20100419
  Transmission Date: 20101027
  Serious: Yes (Hospitalization)
  Sender: FDA-Public Use
  Company Number: US-ASTRAZENECA-2010SE12397

PATIENT
  Age: 26698 Day
  Sex: Male

DRUGS (3)
  1. SEROQUEL [Suspect]
     Indication: BIPOLAR DISORDER
     Route: 048
     Dates: start: 20070321, end: 20071228
  2. SEROQUEL [Suspect]
     Route: 048
     Dates: start: 20071229, end: 20071229
  3. SEROQUEL [Suspect]
     Route: 048
     Dates: start: 20071230, end: 20071230

REACTIONS (2)
  - ASPIRATION [None]
  - DYSPHAGIA [None]
